FAERS Safety Report 15642668 (Version 7)
Quarter: 2020Q1

REPORT INFORMATION
  Report Type: Report from Study
  Country: CA (occurrence: CA)
  Receive Date: 20181121
  Receipt Date: 20200131
  Transmission Date: 20200409
  Serious: Yes (Other)
  Sender: FDA-Public Use
  Company Number: CA-ROCHE-2218368

PATIENT
  Age: 52 Year
  Sex: Female

DRUGS (9)
  1. BACLOFEN. [Concomitant]
     Active Substance: BACLOFEN
     Indication: MUSCLE SPASTICITY
     Route: 065
  2. PREGABALIN. [Concomitant]
     Active Substance: PREGABALIN
     Route: 065
  3. OXYCOCET [Concomitant]
     Active Substance: ACETAMINOPHEN\OXYCODONE HYDROCHLORIDE
     Route: 065
  4. PANTOPRAZOLE [Concomitant]
     Active Substance: PANTOPRAZOLE
     Route: 065
  5. OCREVUS [Suspect]
     Active Substance: OCRELIZUMAB
     Indication: PRIMARY PROGRESSIVE MULTIPLE SCLEROSIS
     Dosage: 0 AND 14 DAY, THEN 600 MG EVERY 6 MONTH, ONGOING
     Route: 042
     Dates: start: 20180927
  6. ESCITALOPRAM [Concomitant]
     Active Substance: ESCITALOPRAM OXALATE
     Indication: DEPRESSION
     Route: 065
  7. NAPROXEN. [Concomitant]
     Active Substance: NAPROXEN
     Route: 065
  8. AMOXICLAV [Suspect]
     Active Substance: AMOXICILLIN\CLAVULANATE POTASSIUM
     Indication: PNEUMONIA
     Route: 065
     Dates: start: 20181117
  9. AMOXICLAV [Suspect]
     Active Substance: AMOXICILLIN\CLAVULANATE POTASSIUM
     Indication: LOWER RESPIRATORY TRACT INFECTION

REACTIONS (10)
  - Fall [Unknown]
  - Haemoglobin decreased [Unknown]
  - Pneumonia [Recovering/Resolving]
  - Bone contusion [Unknown]
  - Euphoric mood [Unknown]
  - Vulvovaginal mycotic infection [Recovered/Resolved]
  - Urinary tract infection [Recovered/Resolved]
  - Pain [Unknown]
  - Cough [Not Recovered/Not Resolved]
  - White blood cell count increased [Unknown]

NARRATIVE: CASE EVENT DATE: 20181116
